FAERS Safety Report 5468520-9 (Version None)
Quarter: 2007Q3

REPORT INFORMATION
  Report Type: 
  Country: None (occurrence: None)
  Receive Date: 20070926
  Receipt Date: 20070813
  Transmission Date: 20080115
  Serious: No
  Sender: FDA-Public Use
  Company Number: US-BRISTOL-MYERS SQUIBB COMPANY-13876230

PATIENT
  Age: 54 Year
  Sex: Male
  Weight: 109 kg

DRUGS (3)
  1. ORENCIA [Suspect]
     Dates: start: 20070806
  2. MORPHINE [Concomitant]
  3. DURAGESIC-100 [Concomitant]

REACTIONS (7)
  - ANXIETY [None]
  - BACK PAIN [None]
  - CRYING [None]
  - HEADACHE [None]
  - INFLUENZA LIKE ILLNESS [None]
  - IRRITABILITY [None]
  - NAUSEA [None]
